FAERS Safety Report 4941119-6 (Version None)
Quarter: 2006Q1

REPORT INFORMATION
  Report Type: 
  Country: None (occurrence: None)
  Receive Date: 20060313
  Receipt Date: 20060309
  Transmission Date: 20060701
  Serious: Yes (Other)
  Sender: FDA-Public Use
  Company Number: US-GLAXOSMITHKLINE-A0596954A

PATIENT
  Age: 55 Year
  Sex: Female

DRUGS (22)
  1. LAMICTAL [Suspect]
     Indication: DEPRESSION
     Dosage: 200MG PER DAY
     Route: 048
  2. SYNTHROID [Concomitant]
  3. METFORMIN [Concomitant]
  4. GLIPIZIDE [Concomitant]
  5. AVANDIA [Concomitant]
  6. LANTUS [Concomitant]
  7. CLARITIN [Concomitant]
  8. SINGULAIR [Concomitant]
  9. COMBIVENT [Concomitant]
  10. ADVAIR DISKUS 100/50 [Concomitant]
  11. NAPROXEN [Concomitant]
  12. VERAPAMIL [Concomitant]
  13. VYTORIN [Concomitant]
  14. PREVACID [Concomitant]
  15. HYDROCODONE [Concomitant]
  16. SOMA [Concomitant]
  17. BENADRYL [Concomitant]
  18. PROMETHAZINE [Concomitant]
  19. EFFEXOR [Concomitant]
  20. LEXAPRO [Concomitant]
  21. KLONOPIN [Concomitant]
  22. DESYREL [Concomitant]

REACTIONS (8)
  - BLUNTED AFFECT [None]
  - COGNITIVE DISORDER [None]
  - DELUSION [None]
  - FATIGUE [None]
  - MEMORY IMPAIRMENT [None]
  - PAIN [None]
  - PYREXIA [None]
  - SYSTEMIC LUPUS ERYTHEMATOSUS [None]
